FAERS Safety Report 11716424 (Version 2)
Quarter: 2015Q4

REPORT INFORMATION
  Report Type: Spontaneous
  Country: US (occurrence: US)
  Receive Date: 20151104
  Receipt Date: 20151110
  Transmission Date: 20160304
  Serious: No
  Sender: FDA-Public Use
  Company Number: US-ELI_LILLY_AND_COMPANY-US201107007642

PATIENT
  Age: 68 Year
  Sex: Female

DRUGS (20)
  1. SIMVASTATIN. [Concomitant]
     Active Substance: SIMVASTATIN
  2. VITAMIN E                            /001105/ [Concomitant]
  3. AMLODIPINE [Concomitant]
     Active Substance: AMLODIPINE BESYLATE
  4. MAGNESIUM [Concomitant]
     Active Substance: MAGNESIUM
  5. FORTEO [Suspect]
     Active Substance: TERIPARATIDE
     Dosage: UNK, QD
     Dates: start: 201205, end: 20120604
  6. BABY ASPIRIN [Concomitant]
     Active Substance: ASPIRIN
  7. FISH OIL [Concomitant]
     Active Substance: FISH OIL
  8. FORTEO [Suspect]
     Active Substance: TERIPARATIDE
     Indication: OSTEOPOROSIS
     Dosage: 20 UG, QD
     Dates: start: 20110717
  9. CELEBREX [Concomitant]
     Active Substance: CELECOXIB
  10. POTASSIUM [Concomitant]
     Active Substance: POTASSIUM
  11. OMEGA-3 ACIDS [Concomitant]
     Active Substance: OMEGA-3 FATTY ACIDS
  12. VITAMIN C [Concomitant]
     Active Substance: ASCORBIC ACID
  13. TYLENOL [Concomitant]
     Active Substance: ACETAMINOPHEN
  14. RAMIPRIL. [Concomitant]
     Active Substance: RAMIPRIL
  15. OMEPRAZOLE. [Concomitant]
     Active Substance: OMEPRAZOLE
  16. NIACIN. [Concomitant]
     Active Substance: NIACIN
  17. VITAMIN D [Concomitant]
     Active Substance: CHOLECALCIFEROL
  18. FORTEO [Suspect]
     Active Substance: TERIPARATIDE
     Dosage: UNK, QD
     Dates: start: 20120604
  19. CALCIUM [Concomitant]
     Active Substance: CALCIUM
  20. GLUCOSAMINE + CHONDROITIN [Concomitant]

REACTIONS (4)
  - Incorrect dose administered [Unknown]
  - Injection site erythema [Unknown]
  - Injection site extravasation [Unknown]
  - Overdose [Recovered/Resolved]

NARRATIVE: CASE EVENT DATE: 20120604
